FAERS Safety Report 23268511 (Version 2)
Quarter: 2023Q4

REPORT INFORMATION
  Report Type: Spontaneous
  Country: US (occurrence: None)
  Receive Date: 20231206
  Receipt Date: 20231213
  Transmission Date: 20240110
  Serious: Yes (Hospitalization)
  Sender: FDA-Public Use
  Company Number: 2023A271213

PATIENT
  Sex: Female

DRUGS (3)
  1. IMJUDO [Suspect]
     Active Substance: TREMELIMUMAB\TREMELIMUMAB-ACTL
     Indication: Lung neoplasm malignant
     Route: 042
  2. IMFINZI [Concomitant]
     Active Substance: DURVALUMAB
     Indication: Lung neoplasm malignant
     Route: 042
  3. IMJUDO [Concomitant]
     Active Substance: TREMELIMUMAB\TREMELIMUMAB-ACTL
     Indication: Colitis
     Route: 042

REACTIONS (1)
  - Colitis [Unknown]
